FAERS Safety Report 8771864 (Version 1)
Quarter: 2012Q4

REPORT INFORMATION
  Report Type: 
  Country: US (occurrence: US)
  Receive Date: 20120905
  Receipt Date: 20120905
  Transmission Date: 20130627
  Serious: Yes (Death)
  Sender: FDA-Public Use
  Company Number: US-TEVA-357274USA

PATIENT
  Age: 47 Year
  Sex: Female

DRUGS (4)
  1. TREANDA [Suspect]
     Indication: BREAST CANCER METASTATIC
     Route: 042
  2. ERLOTINIB [Suspect]
     Indication: BREAST CANCER METASTATIC
     Route: 048
  3. DEXAMETHASONE [Suspect]
     Indication: ANTIEMETIC SUPPORTIVE CARE
     Dosage: 12 mg, Cyclic
     Route: 048
  4. DEXAMETHASONE [Suspect]
     Indication: ANTIEMETIC SUPPORTIVE CARE
     Dosage: 4 mg, bid
     Route: 048

REACTIONS (5)
  - Pneumocystis jiroveci pneumonia [Fatal]
  - Lymphopenia [Fatal]
  - Sepsis [Fatal]
  - Acute respiratory distress syndrome [Fatal]
  - Off label use [Unknown]
